FAERS Safety Report 8355787-2 (Version None)
Quarter: 2012Q2

REPORT INFORMATION
  Report Type: 
  Country: None (occurrence: None)
  Receive Date: 20120514
  Receipt Date: 20120508
  Transmission Date: 20120825
  Serious: Yes (Other)
  Sender: FDA-Public Use
  Company Number: US-PFIZER INC-2012112228

PATIENT
  Sex: Female
  Weight: 76.644 kg

DRUGS (2)
  1. LOVASTATIN [Suspect]
     Indication: BLOOD CHOLESTEROL INCREASED
     Dosage: 80 MG,DAILY
     Dates: start: 20090101, end: 20120301
  2. LIPITOR [Suspect]
     Indication: BLOOD CHOLESTEROL INCREASED
     Dosage: 80 MG, DAILY AT NIGHT
     Dates: start: 20120301

REACTIONS (5)
  - BLOOD CHOLESTEROL INCREASED [None]
  - DRUG INEFFECTIVE [None]
  - PAIN IN EXTREMITY [None]
  - ARTHRALGIA [None]
  - MUSCLE SPASMS [None]
